FAERS Safety Report 11241064 (Version 1)
Quarter: 2015Q3

REPORT INFORMATION
  Report Type: Spontaneous
  Country: FR (occurrence: FR)
  Receive Date: 20150706
  Receipt Date: 20150706
  Transmission Date: 20151125
  Serious: Yes (Death, Hospitalization, Other)
  Sender: FDA-Public Use
  Company Number: FR-GLAXOSMITHKLINE-FR2015GSK096111

PATIENT
  Age: 46 Year
  Sex: Male

DRUGS (27)
  1. RIMIFON [Suspect]
     Active Substance: ISONIAZID
     Indication: ATYPICAL MYCOBACTERIAL INFECTION
     Dosage: UNK
     Dates: start: 20150417, end: 20150516
  2. RIMIFON [Suspect]
     Active Substance: ISONIAZID
     Indication: TUBERCULOSIS
  3. PIRILENE [Suspect]
     Active Substance: PYRAZINAMIDE
     Indication: ATYPICAL MYCOBACTERIAL INFECTION
     Dosage: UNK
     Dates: start: 20150417, end: 20150516
  4. ROVALCYTE [Concomitant]
     Active Substance: VALGANCICLOVIR HYDROCHLORIDE
     Indication: CYTOMEGALOVIRUS TEST POSITIVE
     Dosage: UNK
     Dates: start: 20150512, end: 20150513
  5. ANSATIPINE [Suspect]
     Active Substance: RIFABUTIN
     Indication: TUBERCULOSIS
  6. ZECLAR [Suspect]
     Active Substance: CLARITHROMYCIN
     Indication: TUBERCULOSIS
  7. ZECLAR [Suspect]
     Active Substance: CLARITHROMYCIN
     Indication: ATYPICAL MYCOBACTERIAL INFECTION
     Dosage: UNK
     Dates: start: 20150417, end: 20150516
  8. AMIKLIN [Concomitant]
     Active Substance: AMIKACIN SULFATE
     Indication: PSEUDOMONAS TEST POSITIVE
     Dosage: UNK
     Dates: start: 20150513, end: 20150514
  9. TAZOCILLINE [Concomitant]
     Active Substance: PIPERACILLIN SODIUM\TAZOBACTAM SODIUM
     Indication: ENTEROCOCCAL INFECTION
  10. PREZISTA [Concomitant]
     Active Substance: DARUNAVIR ETHANOLATE
     Indication: HIV INFECTION
     Dosage: UNK
     Dates: start: 20150401, end: 201504
  11. PIPERACILLINE [Concomitant]
     Active Substance: PIPERACILLIN SODIUM
     Indication: PRODUCT USED FOR UNKNOWN INDICATION
     Dosage: UNK
     Dates: start: 20150515
  12. KIVEXA [Suspect]
     Active Substance: ABACAVIR SULFATE\LAMIVUDINE
     Indication: HIV INFECTION
     Dosage: UNK
     Route: 048
     Dates: start: 20150417, end: 20150516
  13. ETHAMBUTOL [Suspect]
     Active Substance: ETHAMBUTOL HYDROCHLORIDE
     Indication: TUBERCULOSIS
  14. FORTUM [Concomitant]
     Active Substance: CEFTAZIDIME
     Indication: PSEUDOMONAS TEST POSITIVE
     Dosage: UNK
     Dates: start: 201504, end: 20150425
  15. TRUVADA [Concomitant]
     Active Substance: EMTRICITABINE\TENOFOVIR DISOPROXIL FUMARATE
     Indication: HIV INFECTION
     Dosage: UNK
     Dates: start: 20150401, end: 201504
  16. NORVIR [Concomitant]
     Active Substance: RITONAVIR
     Indication: HIV INFECTION
     Dosage: UNK
     Dates: start: 20150401, end: 201504
  17. BACTRIM [Concomitant]
     Active Substance: SULFAMETHOXAZOLE\TRIMETHOPRIM
     Indication: PRODUCT USED FOR UNKNOWN INDICATION
     Dosage: UNK
     Dates: end: 20150516
  18. ETHAMBUTOL [Suspect]
     Active Substance: ETHAMBUTOL HYDROCHLORIDE
     Indication: ATYPICAL MYCOBACTERIAL INFECTION
     Dosage: UNK
     Dates: start: 20150417, end: 20150516
  19. AMIKLIN [Concomitant]
     Active Substance: AMIKACIN SULFATE
     Indication: PSEUDOMONAS TEST POSITIVE
     Dosage: UNK
     Route: 042
     Dates: start: 20150418
  20. ISENTRESS [Concomitant]
     Active Substance: RALTEGRAVIR POTASSIUM
     Indication: HIV INFECTION
     Dosage: UNK
     Dates: start: 20150401, end: 20150516
  21. PIRILENE [Suspect]
     Active Substance: PYRAZINAMIDE
     Indication: TUBERCULOSIS
  22. TAZOCILLINE [Concomitant]
     Active Substance: PIPERACILLIN SODIUM\TAZOBACTAM SODIUM
     Indication: PSEUDOMONAS TEST POSITIVE
     Dosage: UNK
     Route: 042
     Dates: start: 20150418
  23. TAZOCILLINE [Concomitant]
     Active Substance: PIPERACILLIN SODIUM\TAZOBACTAM SODIUM
     Indication: PSEUDOMONAS TEST POSITIVE
     Dosage: UNK
     Dates: start: 20150513, end: 20150514
  24. CYMEVAN [Concomitant]
     Active Substance: GANCICLOVIR
     Indication: GASTRITIS
     Dosage: UNK
     Dates: start: 20150513, end: 20150515
  25. ANSATIPINE [Suspect]
     Active Substance: RIFABUTIN
     Indication: ATYPICAL MYCOBACTERIAL INFECTION
     Dosage: UNK
     Dates: start: 20150417, end: 20150516
  26. TRIFLUCAN [Suspect]
     Active Substance: FLUCONAZOLE
     Indication: OESOPHAGEAL CANDIDIASIS
     Dosage: UNK
     Route: 042
     Dates: start: 20150511, end: 20150516
  27. AMIKLIN [Concomitant]
     Active Substance: AMIKACIN SULFATE
     Indication: ENTEROCOCCUS TEST POSITIVE

REACTIONS (1)
  - Toxic epidermal necrolysis [Fatal]

NARRATIVE: CASE EVENT DATE: 20150515
